FAERS Safety Report 20292514 (Version 1)
Quarter: 2022Q1

REPORT INFORMATION
  Report Type: Spontaneous
  Country: US (occurrence: None)
  Receive Date: 20220104
  Receipt Date: 20220104
  Transmission Date: 20220423
  Serious: No
  Sender: FDA-Public Use
  Company Number: None

PATIENT
  Age: 52 Year
  Sex: Male

DRUGS (1)
  1. AUBAGIO [Suspect]
     Active Substance: TERIFLUNOMIDE
     Dosage: 14MG DAILY ORAL
     Route: 048
     Dates: start: 202101

REACTIONS (4)
  - Spinal osteoarthritis [None]
  - Alopecia [None]
  - Alopecia [None]
  - Diarrhoea [None]

NARRATIVE: CASE EVENT DATE: 20220101
